FAERS Safety Report 18820134 (Version 2)
Quarter: 2021Q1

REPORT INFORMATION
  Report Type: Report from Study
  Country: KR (occurrence: KR)
  Receive Date: 20210202
  Receipt Date: 20210216
  Transmission Date: 20210419
  Serious: Yes (Other)
  Sender: FDA-Public Use
  Company Number: KR-SUN PHARMACEUTICAL INDUSTRIES LTD-2021R1-278643

PATIENT
  Age: 40 Year
  Sex: Female

DRUGS (2)
  1. CLONAZEPAM. [Suspect]
     Active Substance: CLONAZEPAM
     Indication: SCHIZOPHRENIA
     Dosage: 2.5 MILLIGRAM
     Route: 065
  2. ZOTEPINE [Suspect]
     Active Substance: ZOTEPINE
     Indication: SCHIZOPHRENIA
     Dosage: 200 MILLIGRAM
     Route: 065

REACTIONS (3)
  - Electrocardiogram QT prolonged [Unknown]
  - Constipation [Unknown]
  - Sedation complication [Unknown]
